FAERS Safety Report 23542064 (Version 1)
Quarter: 2024Q1

REPORT INFORMATION
  Report Type: Report from Study
  Country: US (occurrence: US)
  Receive Date: 20240220
  Receipt Date: 20240220
  Transmission Date: 20240410
  Serious: Yes (Other)
  Sender: FDA-Public Use
  Company Number: US-NOVOPROD-1174404

PATIENT
  Age: 56 Year
  Sex: Female

DRUGS (1)
  1. NOVOLOG [Suspect]
     Active Substance: INSULIN ASPART
     Indication: Type 2 diabetes mellitus
     Dosage: UNK
     Route: 058
     Dates: start: 2016

REACTIONS (4)
  - Diabetic retinopathy [Not Recovered/Not Resolved]
  - Glaucoma [Not Recovered/Not Resolved]
  - Localised infection [Unknown]
  - Toe amputation [Unknown]

NARRATIVE: CASE EVENT DATE: 20160101
